FAERS Safety Report 19657652 (Version 1)
Quarter: 2021Q3

REPORT INFORMATION
  Report Type: Spontaneous
  Country: GB (occurrence: GB)
  Receive Date: 20210804
  Receipt Date: 20210804
  Transmission Date: 20211014
  Serious: Yes (Other)
  Sender: FDA-Public Use
  Company Number: GB-MYLANLABS-2021M1047996

PATIENT
  Age: 38 Year
  Sex: Male

DRUGS (11)
  1. THIAMINE. [Concomitant]
     Active Substance: THIAMINE
     Indication: ILL-DEFINED DISORDER
     Dosage: UNK
  2. CLOMIPRAMINE [Suspect]
     Active Substance: CLOMIPRAMINE
     Indication: OBSESSIVE-COMPULSIVE DISORDER
     Dosage: 50MG CAPS ? TAKE TWO IN THE MORNING AND TAKE THREE AT NIGHT
     Route: 048
     Dates: start: 20200806
  3. METFORMIN [Concomitant]
     Active Substance: METFORMIN HYDROCHLORIDE
     Indication: ILL-DEFINED DISORDER
     Dosage: UNK
  4. BACLOFEN. [Concomitant]
     Active Substance: BACLOFEN
     Indication: ILL-DEFINED DISORDER
     Dosage: UNK
  5. CLOMIPRAMINE [Concomitant]
     Active Substance: CLOMIPRAMINE
     Indication: ILL-DEFINED DISORDER
     Dosage: UNK
  6. LANSOPRAZOLE. [Concomitant]
     Active Substance: LANSOPRAZOLE
     Indication: ILL-DEFINED DISORDER
     Dosage: UNK
  7. PARACETAMOL [Concomitant]
     Active Substance: ACETAMINOPHEN
     Indication: ILL-DEFINED DISORDER
     Dosage: UNK
  8. MIRTAZAPINE. [Suspect]
     Active Substance: MIRTAZAPINE
     Indication: OBSESSIVE-COMPULSIVE DISORDER
     Dosage: 15MG TAKE ONE DAILY
     Route: 048
     Dates: start: 20210715, end: 20210729
  9. DIHYDROCODEINE TARTRATE [Concomitant]
     Active Substance: DIHYDROCODEINE BITARTRATE
     Indication: ILL-DEFINED DISORDER
     Dosage: UNK
  10. PREGABALIN. [Concomitant]
     Active Substance: PREGABALIN
     Indication: ILL-DEFINED DISORDER
     Dosage: UNK
  11. VITAMIN B COMPLEX [Concomitant]
     Active Substance: CYANOCOBALAMIN\DEXPANTHENOL\NIACINAMIDE\PYRIDOXINE HYDROCHLORIDE\RIBOFLAVIN 5^-PHOSPHATE SODIUM\THIAMINE HYDROCHLORIDE\VITAMIN B COMPLEX
     Indication: ILL-DEFINED DISORDER
     Dosage: UNK

REACTIONS (5)
  - Chest pain [Recovering/Resolving]
  - Electric shock sensation [Recovering/Resolving]
  - Hyperhidrosis [Recovering/Resolving]
  - Tremor [Recovering/Resolving]
  - Serum serotonin increased [Recovering/Resolving]

NARRATIVE: CASE EVENT DATE: 202107
